FAERS Safety Report 5698760-5 (Version None)
Quarter: 2008Q2

REPORT INFORMATION
  Report Type: 
  Country: None (occurrence: None)
  Receive Date: 20080403
  Receipt Date: 20080316
  Transmission Date: 20081010
  Serious: Yes (Other)
  Sender: FDA-Public Use
  Company Number: ENT 2008-0028

PATIENT
  Age: 76 Year
  Sex: Female

DRUGS (9)
  1. COMTAN [Suspect]
     Indication: PARKINSON'S DISEASE
     Dosage: 300 MG ORAL, 400 MG ORAL
     Route: 048
     Dates: start: 20070615, end: 20070801
  2. COMTAN [Suspect]
     Indication: PARKINSON'S DISEASE
     Dosage: 300 MG ORAL, 400 MG ORAL
     Route: 048
     Dates: start: 20070801
  3. LEVODOPA BENSERAZIDE HYDROCHLORIDE [Concomitant]
  4. SYMMETREL [Concomitant]
  5. PARLODEL [Concomitant]
  6. CARBIDOPA AND LEVODOPA [Concomitant]
  7. PERMAX [Concomitant]
  8. REQUIP [Concomitant]
  9. SEROQUEL [Concomitant]

REACTIONS (5)
  - DISEASE PROGRESSION [None]
  - DRUG INEFFECTIVE [None]
  - HALLUCINATION [None]
  - PARKINSON'S DISEASE [None]
  - PYREXIA [None]
